FAERS Safety Report 9183446 (Version 2)
Quarter: 2012Q4

REPORT INFORMATION
  Report Type: 
  Country: ES (occurrence: ES)
  Receive Date: 20121031
  Receipt Date: 20121031
  Transmission Date: 20130627
  Serious: Yes (Other)
  Sender: FDA-Public Use
  Company Number: ES-BAXTER-2012BAX016969

PATIENT
  Age: 59 Year
  Sex: Male

DRUGS (1)
  1. ARTISS [Suspect]
     Indication: LYMPHADENECTOMY
     Dates: start: 20120601, end: 20120601

REACTIONS (2)
  - Wound drainage [Recovered/Resolved]
  - Wound dehiscence [Unknown]
